FAERS Safety Report 15069588 (Version 1)
Quarter: 2018Q2

REPORT INFORMATION
  Report Type: Spontaneous
  Country: US (occurrence: US)
  Receive Date: 20180626
  Receipt Date: 20180626
  Transmission Date: 20180711
  Serious: No
  Sender: FDA-Public Use
  Company Number: US-AMGEN-USASP2011056218

PATIENT
  Age: 66 Year
  Sex: Male

DRUGS (2)
  1. NEULASTA [Suspect]
     Active Substance: PEGFILGRASTIM
     Indication: CHEMOTHERAPY
     Dosage: 6 MG, UNK
     Dates: start: 20111027
  2. TAXOTERE [Concomitant]
     Active Substance: DOCETAXEL
     Indication: SARCOMA
     Dosage: UNK

REACTIONS (5)
  - Fatigue [Recovering/Resolving]
  - Discomfort [Recovering/Resolving]
  - Insomnia [Recovering/Resolving]
  - Asthenia [Recovering/Resolving]
  - Bone pain [Recovering/Resolving]
